FAERS Safety Report 11658022 (Version 1)
Quarter: 2015Q4

REPORT INFORMATION
  Report Type: Spontaneous
  Country: None (occurrence: US)
  Receive Date: 20151023
  Receipt Date: 20151023
  Transmission Date: 20160304
  Serious: No
  Sender: FDA-Public Use
  Company Number: US-AMPHASTAR PHARMACEUTICALS, INC.-1043340

PATIENT
  Sex: Female

DRUGS (1)
  1. ENOXAPARIN SODIUM. [Suspect]
     Active Substance: ENOXAPARIN SODIUM
     Indication: KNEE OPERATION
     Route: 058
     Dates: start: 20141101

REACTIONS (1)
  - Vaginal haemorrhage [Unknown]
